FAERS Safety Report 5412089-1 (Version None)
Quarter: 2007Q3

REPORT INFORMATION
  Report Type: 
  Country: None (occurrence: None)
  Receive Date: 20070713
  Receipt Date: 20070328
  Transmission Date: 20080115
  Serious: No
  Sender: FDA-Public Use
  Company Number: 2007SP001117

PATIENT
  Age: 78 Year
  Sex: Male
  Weight: 95.2554 kg

DRUGS (9)
  1. LUNESTA [Suspect]
     Indication: INSOMNIA
     Dosage: 3 MG;HS;ORAL
     Route: 048
     Dates: start: 20070204
  2. VENLFAXINE [Concomitant]
  3. AMIODARONE HCL [Concomitant]
  4. TAMSULOSIN HCL [Concomitant]
  5. HYDROCHLOROTHIAZIDE [Concomitant]
  6. TOPROL-XL [Concomitant]
  7. WARFARIN [Concomitant]
  8. NEXIUM [Concomitant]
  9. AMLODIPINE BESYLATE [Concomitant]

REACTIONS (1)
  - DYSGEUSIA [None]
